FAERS Safety Report 15666310 (Version 2)
Quarter: 2021Q2

REPORT INFORMATION
  Report Type: Spontaneous
  Country: GB (occurrence: GB)
  Receive Date: 20181128
  Receipt Date: 20210614
  Transmission Date: 20210716
  Serious: Yes (Hospitalization, Other)
  Sender: FDA-Public Use
  Company Number: GB-GILEAD-2018-0375883

PATIENT
  Age: 54 Year
  Sex: Female

DRUGS (7)
  1. TYBOST [Suspect]
     Active Substance: COBICISTAT
     Indication: HIV INFECTION
     Route: 065
  2. TRIAMCINOLONE ACETONIDE. [Interacting]
     Active Substance: TRIAMCINOLONE ACETONIDE
     Indication: ARTHRALGIA
     Dosage: 1 DF, ONCE
     Route: 014
  3. TRIAMCINOLONE [Suspect]
     Active Substance: TRIAMCINOLONE
     Indication: BURSITIS
     Route: 042
  4. BUPIVACAINE. [Suspect]
     Active Substance: BUPIVACAINE
     Indication: BURSITIS
     Route: 042
  5. DARUNAVIR [Concomitant]
     Active Substance: DARUNAVIR
  6. HYDROCORTISONE. [Concomitant]
     Active Substance: HYDROCORTISONE
  7. DOLUTEGRAVIR [Concomitant]
     Active Substance: DOLUTEGRAVIR

REACTIONS (3)
  - Adrenal insufficiency [Recovered/Resolved]
  - Drug interaction [Unknown]
  - Cushing^s syndrome [Unknown]
